FAERS Safety Report 19694162 (Version 1)
Quarter: 2021Q3

REPORT INFORMATION
  Report Type: Spontaneous
  Country: US (occurrence: US)
  Receive Date: 20210813
  Receipt Date: 20210813
  Transmission Date: 20211014
  Serious: Yes (Hospitalization, Other)
  Sender: FDA-Public Use
  Company Number: US-LUPIN PHARMACEUTICALS INC.-2021-14477

PATIENT
  Age: 34 Year
  Sex: Female

DRUGS (8)
  1. CEFTRIAXONE. [Suspect]
     Active Substance: CEFTRIAXONE
     Indication: LYME DISEASE
     Dosage: UNK
     Route: 042
  2. AZITHROMYCIN ANHYDROUS. [Suspect]
     Active Substance: AZITHROMYCIN ANHYDROUS
     Indication: ANTIBIOTIC THERAPY
     Dosage: UNK (RECEIVED TWO 5DAYS COURSES OF AZITHROMYCIN)
     Route: 065
  3. SULFAMETHOXAZOLE AND TRIMETHOPRIM [Suspect]
     Active Substance: SULFAMETHOXAZOLE\TRIMETHOPRIM
     Indication: EVIDENCE BASED TREATMENT
     Dosage: UNK
     Route: 065
  4. DISULFIRAM. [Concomitant]
     Active Substance: DISULFIRAM
     Indication: LYME DISEASE
     Dosage: UNK (HAD BEEN PRESCRIBED WITH INTERMITTENT COURSES)
     Route: 065
  5. AMIKACIN. [Concomitant]
     Active Substance: AMIKACIN
     Indication: EVIDENCE BASED TREATMENT
     Dosage: UNK
     Route: 065
  6. DOXYCYCLINE. [Suspect]
     Active Substance: DOXYCYCLINE
     Indication: LYME DISEASE
     Dosage: UNK
     Route: 042
  7. DOXYCYCLINE. [Suspect]
     Active Substance: DOXYCYCLINE
     Dosage: UNK, HAD BEEN PRESCRIBED WITH INTERMITTENT COURSES
     Route: 048
  8. AZITHROMYCIN ANHYDROUS. [Suspect]
     Active Substance: AZITHROMYCIN ANHYDROUS
     Dosage: UNK (RECEIVED TWO 5DAYS COURSES OF AZITHROMYCIN)
     Route: 065

REACTIONS (6)
  - Nocardiosis [Recovering/Resolving]
  - Endocarditis bacterial [Recovering/Resolving]
  - Rash maculo-papular [Recovered/Resolved]
  - Septic pulmonary embolism [Recovering/Resolving]
  - Drug eruption [Recovered/Resolved]
  - Drug ineffective [Unknown]
